FAERS Safety Report 5332076-1 (Version None)
Quarter: 2007Q2

REPORT INFORMATION
  Report Type: 
  Country: None (occurrence: None)
  Receive Date: 20070523
  Receipt Date: 20070509
  Transmission Date: 20071010
  Serious: Yes (Life-Threatening, Hospitalization)
  Sender: FDA-Public Use
  Company Number: FI-AVENTIS-200712258EU

PATIENT
  Age: 25 Year
  Sex: Male

DRUGS (1)
  1. TRENTAL [Suspect]
     Indication: DRUG USE FOR UNKNOWN INDICATION
     Route: 048
     Dates: start: 20070228, end: 20070305

REACTIONS (8)
  - APLASTIC ANAEMIA [None]
  - GENERAL PHYSICAL HEALTH DETERIORATION [None]
  - HAEMATEMESIS [None]
  - HAEMATOMA [None]
  - NAUSEA [None]
  - PETECHIAE [None]
  - PLATELET COUNT DECREASED [None]
  - VOMITING [None]
